FAERS Safety Report 25015392 (Version 1)
Quarter: 2025Q1

REPORT INFORMATION
  Report Type: Spontaneous
  Country: GB (occurrence: GB)
  Receive Date: 20250226
  Receipt Date: 20250226
  Transmission Date: 20250409
  Serious: Yes (Other)
  Sender: MSN LABORATORIES PRIVATE LIMITED
  Company Number: GB-MSNLABS-2025MSNLIT00484

PATIENT

DRUGS (1)
  1. CAPECITABINE [Suspect]
     Active Substance: CAPECITABINE
     Indication: Cholangiocarcinoma
     Dosage: EIGHT CYCLES (1250MG/M2 BD ON DAYS 1-14 OF A 21-DAY CYCLE)
     Route: 048

REACTIONS (2)
  - IIIrd nerve paralysis [Recovered/Resolved]
  - Hordeolum [Recovered/Resolved]
